FAERS Safety Report 19306472 (Version 2)
Quarter: 2021Q4

REPORT INFORMATION
  Report Type: Spontaneous
  Country: CA (occurrence: CA)
  Receive Date: 20210526
  Receipt Date: 20211003
  Transmission Date: 20220303
  Serious: Yes (Other)
  Sender: FDA-Public Use
  Company Number: CA-SAMSUNG BIOEPIS-SB-2021-12383

PATIENT
  Age: 70 Year
  Sex: Male

DRUGS (7)
  1. INFLIXIMAB [Suspect]
     Active Substance: INFLIXIMAB
     Indication: Ankylosing spondylitis
     Route: 042
  2. INDOMETHACIN [Concomitant]
     Active Substance: INDOMETHACIN
     Indication: Product used for unknown indication
     Route: 065
  3. INDOMETHACIN [Concomitant]
     Active Substance: INDOMETHACIN
     Route: 065
  4. SULFASALAZINE [Concomitant]
     Active Substance: SULFASALAZINE
     Indication: Ankylosing spondylitis
     Route: 048
  5. SULFASALAZINE [Concomitant]
     Active Substance: SULFASALAZINE
     Indication: Product used for unknown indication
     Route: 065
  6. TOLTERODINE [Concomitant]
     Active Substance: TOLTERODINE
     Indication: Urinary tract disorder
     Route: 048
  7. TOLTERODINE [Concomitant]
     Active Substance: TOLTERODINE
     Route: 048

REACTIONS (13)
  - Arthropathy [Recovered/Resolved]
  - Blood pressure fluctuation [Recovered/Resolved]
  - Condition aggravated [Recovered/Resolved]
  - Enthesopathy [Recovered/Resolved]
  - Loss of personal independence in daily activities [Recovered/Resolved]
  - Mood altered [Recovered/Resolved]
  - Nasopharyngitis [Recovered/Resolved]
  - Rheumatoid arthritis [Recovered/Resolved]
  - Spinal pain [Recovered/Resolved]
  - Synovitis [Recovered/Resolved]
  - Tendon pain [Recovered/Resolved]
  - Nausea [Recovered/Resolved]
  - Incorrect dose administered [Recovered/Resolved]
